FAERS Safety Report 6529001-4 (Version None)
Quarter: 2009Q4

REPORT INFORMATION
  Report Type: 
  Country: None (occurrence: None)
  Receive Date: 20091230
  Receipt Date: 20091221
  Transmission Date: 20100525
  Serious: Yes (Death, Hospitalization)
  Sender: FDA-Public Use
  Company Number: KR-JNJFOC-20090402270

PATIENT
  Age: 59 Year
  Sex: Female

DRUGS (9)
  1. DECITABINE (DECITABINE) LYOPHILIZED POWDER [Suspect]
     Indication: MYELODYSPLASTIC SYNDROME
     Dosage: 30 MG, 1 IN 1 DAY, INTRAVENOUS
     Route: 042
     Dates: start: 20090206, end: 20090210
  2. VANCOMYCIN HCL (VANCOMYCIN HYDROCHLORIDE) UNSPECIFIED [Suspect]
     Indication: PNEUMONIA
     Dosage: 1 G, INTRAVENOUS
     Route: 042
     Dates: start: 20090304, end: 20090327
  3. LASIX [Concomitant]
  4. POTASSIUM CHLORIDE [Concomitant]
  5. PREPENEM  (PRIMAXIN /00820501/) [Concomitant]
  6. SEVATRIM       (BACTRIM /00086101/) [Concomitant]
  7. CIPROFLOXACIN [Concomitant]
  8. FAMOTIDINE [Concomitant]
  9. SPORANOX [Concomitant]

REACTIONS (6)
  - CONDITION AGGRAVATED [None]
  - CONTINUOUS HAEMODIAFILTRATION [None]
  - NEUTROPENIA [None]
  - OEDEMA PERIPHERAL [None]
  - PNEUMONIA BACTERIAL [None]
  - RENAL FAILURE ACUTE [None]
